FAERS Safety Report 4322585-6 (Version None)
Quarter: 2004Q1

REPORT INFORMATION
  Report Type: 
  Country: None (occurrence: None)
  Receive Date: 20040324
  Receipt Date: 20040312
  Transmission Date: 20041129
  Serious: Yes (Other)
  Sender: FDA-Public Use
  Company Number: PHHO2004ES03720

PATIENT
  Age: 59 Year
  Sex: Male
  Weight: 74 kg

DRUGS (9)
  1. SANDOSTATIN LAR [Suspect]
     Indication: DIABETIC RETINOPATHY
     Dosage: 20 MG, UNK
     Route: 030
     Dates: start: 20010107, end: 20040203
  2. RESINCALCIO [Concomitant]
  3. CARDURAN NEO [Concomitant]
  4. ISODIUR [Concomitant]
  5. LISINOPRIL [Concomitant]
  6. MASDIL - SLOW RELEASE [Concomitant]
  7. ROCALTROL [Concomitant]
  8. INSULIN [Concomitant]
  9. EPOGEN [Concomitant]

REACTIONS (5)
  - ABDOMINAL NEOPLASM [None]
  - ABDOMINAL WALL CYST [None]
  - ASCITES [None]
  - GASTROINTESTINAL MALFORMATION [None]
  - PANCREATIC PSEUDOCYST [None]
